FAERS Safety Report 10335704 (Version 1)
Quarter: 2014Q3

REPORT INFORMATION
  Report Type: Spontaneous
  Country: US (occurrence: None)
  Receive Date: 20140722
  Receipt Date: 20140722
  Transmission Date: 20150326
  Serious: No
  Sender: FDA-Public Use
  Company Number: None

PATIENT

DRUGS (1)
  1. SCAR CREAM (FLUTICASONE/LEVOCETIRIZINE) [Suspect]
     Active Substance: FLUTICASONE\LEVOCETIRIZINE

REACTIONS (6)
  - Application site erythema [None]
  - Application site reaction [None]
  - Application site pruritus [None]
  - Papule [None]
  - Application site discolouration [None]
  - Scab [None]
